FAERS Safety Report 24043166 (Version 2)
Quarter: 2024Q3

REPORT INFORMATION
  Report Type: Report from Study
  Country: AR (occurrence: AR)
  Receive Date: 20240702
  Receipt Date: 20240921
  Transmission Date: 20241017
  Serious: Yes (Life-Threatening, Hospitalization)
  Sender: ABBVIE
  Company Number: AR-ABBVIE-5822682

PATIENT
  Sex: Male

DRUGS (1)
  1. SKYRIZI [Suspect]
     Active Substance: RISANKIZUMAB-RZAA
     Indication: Psoriasis
     Dosage: FORM STRENGTH: 150 MG
     Route: 058
     Dates: start: 20201201

REACTIONS (2)
  - Bronchospasm [Recovered/Resolved]
  - Arrhythmia [Recovering/Resolving]

NARRATIVE: CASE EVENT DATE: 20240101
